FAERS Safety Report 7391589-1 (Version None)
Quarter: 2011Q2

REPORT INFORMATION
  Report Type: 
  Country: None (occurrence: None)
  Receive Date: 20110404
  Receipt Date: 20110330
  Transmission Date: 20111010
  Serious: Yes (Death)
  Sender: FDA-Public Use
  Company Number: PHHY2011BR26345

PATIENT
  Sex: Male

DRUGS (8)
  1. FORASEQ [Suspect]
     Dosage: 12/400 MCG
  2. DIOVAN AMLO FIX [Suspect]
     Dosage: 320 MG OF VALSARTAN AND 5 MG OF AMLODIPINE
  3. DIOVAN HCT [Suspect]
     Dosage: 160 MG OF VALSARTAN AND 12.5 MG OF HYDROCHLOROTHIAZIDE
  4. DIOVAN [Suspect]
     Dosage: 80 MG, UNK
  5. DIOVAN [Suspect]
     Dosage: 160 MG, UNK
  6. DIOVAN HCT [Suspect]
     Dosage: 80 MG OF VALSARTAN AND 12.5 MG OF HYDROCHLOROTHIAZIDE
  7. DIOVAN AMLO FIX [Suspect]
     Dosage: 160 MG OF VALSARTAN AND 5 MG OF AMLODIPINE
  8. DIOVAN HCT [Suspect]
     Dosage: 320 MG OF VALSARTAN AND 12.5 MG OF HYDROCHLOROTHIAZIDE

REACTIONS (1)
  - DEATH [None]
